FAERS Safety Report 13536658 (Version 4)
Quarter: 2018Q2

REPORT INFORMATION
  Report Type: Report from Study
  Country: DE (occurrence: DE)
  Receive Date: 20170511
  Receipt Date: 20180407
  Transmission Date: 20180711
  Serious: Yes (Death)
  Sender: FDA-Public Use
  Company Number: DE-ROCHE-1700522

PATIENT
  Age: 56 Year
  Sex: Female
  Weight: 77.1 kg

DRUGS (14)
  1. PACLITAXEL. [Concomitant]
     Active Substance: PACLITAXEL
     Dosage: ALSO RECEIVED ON 02/APR/2015 AND 10/APR/2014
     Route: 042
     Dates: start: 20141112
  2. VOLTAREN [Concomitant]
     Active Substance: DICLOFENAC SODIUM
     Indication: PAIN
     Route: 048
     Dates: start: 20140919
  3. ONDANSETRON [Concomitant]
     Active Substance: ONDANSETRON
     Indication: NAUSEA
     Route: 048
     Dates: start: 20140919
  4. CEFUROXIM [Concomitant]
     Active Substance: CEFUROXIME
     Indication: INFLAMMATION
     Route: 048
     Dates: start: 20140919
  5. ZOPICLON [Concomitant]
     Active Substance: ZOPICLONE
     Dosage: SLEEPING AID
     Route: 048
     Dates: start: 20140919
  6. BEVACIZUMAB. [Suspect]
     Active Substance: BEVACIZUMAB
     Route: 042
     Dates: start: 20160126
  7. PACLITAXEL. [Concomitant]
     Active Substance: PACLITAXEL
     Dosage: ALSO RECEIVED ON 08/MAY/2015
     Route: 042
     Dates: start: 20150430
  8. BEVACIZUMAB. [Suspect]
     Active Substance: BEVACIZUMAB
     Route: 042
     Dates: start: 20151012
  9. PACLITAXEL. [Concomitant]
     Active Substance: PACLITAXEL
     Indication: BREAST CANCER
     Dosage: ALSO RECEIVED ON 22/OCT/2014
     Route: 042
     Dates: start: 20141015, end: 20141022
  10. PACLITAXEL. [Concomitant]
     Active Substance: PACLITAXEL
     Dosage: ALSO RECEIVED ON ALSO RECEIVED ON 12/NOV/2014, 27/NOV/2014, 11/DEC/2014, 18/DEC/2014, 25/DEC/2015, 0
     Route: 042
     Dates: start: 20141029, end: 20141029
  11. PACLITAXEL. [Concomitant]
     Active Substance: PACLITAXEL
     Route: 042
     Dates: start: 20150417
  12. BEVACIZUMAB. [Suspect]
     Active Substance: BEVACIZUMAB
     Indication: BREAST CANCER
     Route: 042
     Dates: start: 20141029
  13. CANDECOR [Concomitant]
     Active Substance: CANDESARTAN CILEXETIL
     Indication: HYPERTENSION
     Route: 048
     Dates: start: 20140918
  14. MONO EMOBLEX [Concomitant]
     Indication: THROMBOSIS PROPHYLAXIS
     Route: 058
     Dates: start: 20140919

REACTIONS (2)
  - Radiation skin injury [Recovered/Resolved]
  - Dyspnoea [Fatal]

NARRATIVE: CASE EVENT DATE: 20151012
